FAERS Safety Report 5069878-5 (Version None)
Quarter: 2006Q3

REPORT INFORMATION
  Report Type: 
  Country: None (occurrence: None)
  Receive Date: 20060725
  Receipt Date: 20060709
  Transmission Date: 20061208
  Serious: Yes (Hospitalization, Other)
  Sender: FDA-Public Use
  Company Number: 2006BH011721

PATIENT
  Age: 3 Year
  Sex: Male

DRUGS (2)
  1. IMMUNE GLOBULIN (HUMAN) [Suspect]
     Indication: KAWASAKI'S DISEASE
     Dosage: 1000 MG/KG; IV
     Route: 042
  2. ASPIRIN [Concomitant]

REACTIONS (3)
  - CEREBRAL INFARCTION [None]
  - HYPERREFLEXIA [None]
  - VARICELLA [None]
